FAERS Safety Report 6045026-X (Version None)
Quarter: 2009Q1

REPORT INFORMATION
  Report Type: 
  Country: None (occurrence: None)
  Receive Date: 20090121
  Receipt Date: 20090112
  Transmission Date: 20090719
  Serious: Yes (Other)
  Sender: FDA-Public Use
  Company Number: FR-BRISTOL-MYERS SQUIBB COMPANY-14348510

PATIENT
  Age: 78 Year
  Sex: Female
  Weight: 81 kg

DRUGS (2)
  1. SPRYCEL [Suspect]
     Indication: CHRONIC MYELOID LEUKAEMIA
     Dates: start: 20080103, end: 20080822
  2. GLEEVEC [Suspect]
     Dosage: 400MG/D 26APR04-12APR07,600MG FROM 12APR-12NOV07, INTERRUPTED ON 12NOV07 + RESTARTED ON 10DEC07
     Dates: start: 20040426

REACTIONS (6)
  - ANAEMIA [None]
  - BLOOD CREATINE PHOSPHOKINASE INCREASED [None]
  - ERECTILE DYSFUNCTION [None]
  - HYPERURICAEMIA [None]
  - NEUROPATHY PERIPHERAL [None]
  - RENAL FAILURE [None]
